FAERS Safety Report 18359746 (Version 2)
Quarter: 2020Q4

REPORT INFORMATION
  Report Type: Spontaneous
  Country: DE (occurrence: DE)
  Receive Date: 20201008
  Receipt Date: 20201020
  Transmission Date: 20210114
  Serious: Yes (Other)
  Sender: FDA-Public Use
  Company Number: DE-MDD US OPERATIONS-E2B_00003531

PATIENT
  Age: 77 Year
  Sex: Male

DRUGS (6)
  1. XADAGO [Suspect]
     Active Substance: SAFINAMIDE MESYLATE
     Route: 048
     Dates: start: 20200803, end: 20200901
  2. XADAGO [Suspect]
     Active Substance: SAFINAMIDE MESYLATE
     Indication: PARKINSON^S DISEASE
     Dates: start: 20200724, end: 20200802
  3. L-DOPA 100 [Concomitant]
  4. L-DOPA RETARD [Concomitant]
  5. SIFROL [Concomitant]
     Active Substance: PRAMIPEXOLE
  6. SATIVEX [Concomitant]
     Active Substance: NABIXIMOLS
     Dosage: 1-1.5 DOSAGE FORM

REACTIONS (1)
  - Hypertensive urgency [Recovered/Resolved]

NARRATIVE: CASE EVENT DATE: 20200803
